FAERS Safety Report 6408925-2 (Version None)
Quarter: 2009Q4

REPORT INFORMATION
  Report Type: 
  Country: None (occurrence: None)
  Receive Date: 20091021
  Receipt Date: 20091008
  Transmission Date: 20100525
  Serious: Yes (Hospitalization)
  Sender: FDA-Public Use
  Company Number: US-ELI_LILLY_AND_COMPANY-US200910002206

PATIENT
  Sex: Female

DRUGS (6)
  1. CYMBALTA [Suspect]
     Indication: DEPRESSION
     Dosage: 40 MG, DAILY (1/D)
     Dates: start: 20090901
  2. CYMBALTA [Suspect]
     Dosage: 60 MG, DAILY (1/D)
     Dates: end: 20091003
  3. LORTAB [Concomitant]
     Dosage: UNK, AS NEEDED
  4. ANTIBIOTICS [Concomitant]
     Dosage: 40 MG, UNK
     Dates: start: 20090908
  5. ANTIBIOTICS [Concomitant]
     Dosage: 60 MG, UNK
     Dates: end: 20091003
  6. FORTEO /USA/ [Concomitant]

REACTIONS (6)
  - ABDOMINAL PAIN UPPER [None]
  - BONE PAIN [None]
  - MALAISE [None]
  - PAIN [None]
  - SHOULDER OPERATION [None]
  - VOMITING [None]
